FAERS Safety Report 7400263-4 (Version None)
Quarter: 2011Q2

REPORT INFORMATION
  Report Type: 
  Country: None (occurrence: None)
  Receive Date: 20110407
  Receipt Date: 20110329
  Transmission Date: 20111010
  Serious: Yes (Other)
  Sender: FDA-Public Use
  Company Number: NL-ABBOTT-11P-114-0715050-00

PATIENT
  Age: 58 Year
  Sex: Male

DRUGS (4)
  1. ATAZANAVIR [Concomitant]
     Indication: HIV INFECTION
  2. EMTRICITABINE [Concomitant]
     Indication: HIV INFECTION
  3. RITONAVIR [Suspect]
     Indication: HIV INFECTION
  4. TENOFOVIR [Suspect]
     Indication: HIV INFECTION

REACTIONS (8)
  - BLOOD CREATININE INCREASED [None]
  - GLYCOSURIA [None]
  - PROTEINURIA [None]
  - HYPOURICAEMIA [None]
  - BETA 2 MICROGLOBULIN URINE ABNORMAL [None]
  - BLOOD BICARBONATE DECREASED [None]
  - HYPOPHOSPHATAEMIA [None]
  - RENAL TUBULAR DISORDER [None]
